FAERS Safety Report 8814898 (Version 3)
Quarter: 2014Q1

REPORT INFORMATION
  Report Type: Spontaneous
  Country: US (occurrence: US)
  Receive Date: 20120928
  Receipt Date: 20140113
  Transmission Date: 20141002
  Serious: Yes (Hospitalization, Other)
  Sender: FDA-Public Use
  Company Number: US-009507513-1209USA010877

PATIENT
  Sex: Female

DRUGS (8)
  1. FOSAMAX [Suspect]
     Indication: OSTEOPOROSIS
     Dosage: 10 MG, UNK
     Route: 048
     Dates: start: 200011, end: 201106
  2. FOSAMAX [Suspect]
     Dosage: 70 MG, QW
     Dates: start: 200011, end: 201106
  3. CALCIUM (UNSPECIFIED) [Concomitant]
  4. VITAMIN E [Concomitant]
  5. FOLIC ACID [Concomitant]
  6. FERROUS SULFATE [Concomitant]
  7. VITAMINS (UNSPECIFIED) [Concomitant]
  8. OMEGA-3 MARINE TRIGLYCERIDES [Concomitant]

REACTIONS (14)
  - Femur fracture [Recovering/Resolving]
  - Intramedullary rod insertion [Unknown]
  - Joint arthroplasty [Unknown]
  - Anaemia postoperative [Unknown]
  - Packed red blood cell transfusion [Unknown]
  - Fall [Unknown]
  - Lower limb fracture [Unknown]
  - Vitamin D deficiency [Unknown]
  - Hypertension [Unknown]
  - Blood cholesterol increased [Unknown]
  - Rheumatoid arthritis [Unknown]
  - Diabetes mellitus [Unknown]
  - Carpal tunnel syndrome [Unknown]
  - Cubital tunnel syndrome [Unknown]
